FAERS Safety Report 4765576-3 (Version None)
Quarter: 2005Q3

REPORT INFORMATION
  Report Type: 
  Country: None (occurrence: None)
  Receive Date: 20050906
  Receipt Date: 20050818
  Transmission Date: 20060218
  Serious: Yes (Other)
  Sender: FDA-Public Use
  Company Number: DE_050716558

PATIENT
  Age: 75 Year
  Sex: Female
  Weight: 59 kg

DRUGS (6)
  1. GEMZAR [Suspect]
     Indication: OVARIAN CANCER
     Dosage: 1400 MG
     Dates: start: 20050501, end: 20050701
  2. HEPARIN [Concomitant]
  3. DEXAMETHASONE [Concomitant]
  4. NEUPOGEN [Concomitant]
  5. BETA 2 SYMPATOMIMETIC [Concomitant]
  6. THEOPHYL (THEOPHYLLINE) [Concomitant]

REACTIONS (15)
  - AGITATION [None]
  - ASCITES [None]
  - ASTHMA [None]
  - CYANOSIS [None]
  - DRUG INTERACTION [None]
  - HAEMODIALYSIS-INDUCED SYMPTOM [None]
  - HYPOXIA [None]
  - LEUKOPENIA [None]
  - LUNG INFILTRATION [None]
  - MUSCULOSKELETAL PAIN [None]
  - NEOPLASM PROGRESSION [None]
  - PULMONARY EMBOLISM [None]
  - THERAPY NON-RESPONDER [None]
  - TUMOUR MARKER INCREASED [None]
  - VASOCONSTRICTION [None]
